FAERS Safety Report 5835097-5 (Version None)
Quarter: 2008Q3

REPORT INFORMATION
  Report Type: 
  Country: None (occurrence: None)
  Receive Date: 20080805
  Receipt Date: 20080805
  Transmission Date: 20090109
  Serious: Yes (Other)
  Sender: FDA-Public Use
  Company Number: None

PATIENT
  Age: 51 Year
  Sex: Female
  Weight: 53.978 kg

DRUGS (1)
  1. KENALOG [Suspect]
     Indication: SCAR
     Dosage: ONCE -TWO PLACES-
     Dates: start: 20080514, end: 20080514

REACTIONS (2)
  - INJECTION SITE REACTION [None]
  - SKIN DISCOLOURATION [None]
